FAERS Safety Report 8282102-5 (Version None)
Quarter: 2012Q2

REPORT INFORMATION
  Report Type: 
  Country: None (occurrence: None)
  Receive Date: 20120413
  Receipt Date: 20120406
  Transmission Date: 20120825
  Serious: Yes (Hospitalization)
  Sender: FDA-Public Use
  Company Number: FR-BAYER-2012-034934

PATIENT
  Age: 77 Year
  Sex: Female

DRUGS (8)
  1. LOVENOX [Concomitant]
     Dosage: 1 DF, QD
     Route: 058
     Dates: start: 20120103
  2. BACTRIM DS [Suspect]
     Indication: INFECTED SKIN ULCER
     Dosage: 1 DF, BID
     Route: 048
     Dates: start: 20120201, end: 20120209
  3. CIPROFLOXACIN HYDROCHLORIDE [Suspect]
     Indication: INFECTED SKIN ULCER
     Dosage: 1 DF, BID
     Route: 048
     Dates: start: 20120206, end: 20120209
  4. PAROXETINE [Concomitant]
     Dosage: 1 DF, QD
     Route: 048
     Dates: start: 20120103
  5. DITROPAN [Concomitant]
     Dosage: 1 DF, QD
     Route: 048
     Dates: start: 20120103
  6. ALLOPURINOL [Concomitant]
     Dosage: 1 DF, QD
     Route: 048
     Dates: start: 20120103
  7. ACETAMINOPHEN [Concomitant]
     Dosage: 1 DF, Q4HR
     Route: 048
     Dates: start: 20120103
  8. FENOFIBRATE [Concomitant]
     Dosage: 1 DF, QD
     Route: 048
     Dates: start: 20120103

REACTIONS (1)
  - GENERALISED ERYTHEMA [None]
